FAERS Safety Report 23841919 (Version 1)
Quarter: 2024Q2

REPORT INFORMATION
  Report Type: Spontaneous
  Country: US (occurrence: None)
  Receive Date: 20240509
  Receipt Date: 20240509
  Transmission Date: 20240716
  Serious: Yes (Hospitalization)
  Sender: FDA-Public Use
  Company Number: None

PATIENT
  Age: 74 Year
  Sex: Male

DRUGS (1)
  1. LISINOPRIL [Suspect]
     Active Substance: LISINOPRIL
     Indication: Hypertension
     Dates: start: 20220218, end: 20220527

REACTIONS (7)
  - Hyperkalaemia [None]
  - Acute kidney injury [None]
  - Blood pressure increased [None]
  - Acute kidney injury [None]
  - Metabolic acidosis [None]
  - Diarrhoea [None]
  - Chronic kidney disease [None]

NARRATIVE: CASE EVENT DATE: 20220527
